FAERS Safety Report 4933030-1 (Version None)
Quarter: 2006Q1

REPORT INFORMATION
  Report Type: 
  Country: None (occurrence: None)
  Receive Date: 20060301
  Receipt Date: 20060217
  Transmission Date: 20060701
  Serious: Yes (Hospitalization, Other)
  Sender: FDA-Public Use
  Company Number: 2006025062

PATIENT
  Age: 83 Year
  Sex: Male

DRUGS (1)
  1. LIPITOR [Suspect]
     Indication: BLOOD CHOLESTEROL INCREASED

REACTIONS (6)
  - DIFFICULTY IN WALKING [None]
  - DYSPNOEA [None]
  - GRUNTING [None]
  - PAIN [None]
  - VASCULAR OCCLUSION [None]
  - WEIGHT DECREASED [None]
